FAERS Safety Report 6986603-9 (Version None)
Quarter: 2010Q3

REPORT INFORMATION
  Report Type: 
  Country: None (occurrence: None)
  Receive Date: 20100827
  Receipt Date: 20100623
  Transmission Date: 20110219
  Serious: Yes (Other)
  Sender: FDA-Public Use
  Company Number: AMAG201000282

PATIENT
  Age: 79 Year
  Sex: Male
  Weight: 250.1 kg

DRUGS (22)
  1. FERAHEME [Suspect]
     Indication: IRON DEFICIENCY ANAEMIA
     Dosage: SEE IMAGE
     Route: 042
     Dates: start: 20100415, end: 20100415
  2. WARFARIN (WARFAIN SODIUM) [Concomitant]
  3. SIMVASTATIN [Concomitant]
  4. SELENIUM SULIFIDE (SELENIUM SULIFIDE) [Concomitant]
  5. DOXAZOSIN (DOXAZOSIN MESILATE) [Concomitant]
  6. VALSARTAN/HYDROCHLOORTHIAZIDE (HYDROCHLOROTHIAZIDE, VALASTAN) [Concomitant]
  7. AVODART [Concomitant]
  8. ADVAIR DISKUS 100/50 [Concomitant]
  9. DIGOXIN [Concomitant]
  10. ALLOPURINOL [Concomitant]
  11. ASPIRIN [Concomitant]
  12. FUROSEMIDE (FUROSEMIDE SODIUM) [Concomitant]
  13. OMEPRAZOLE [Concomitant]
  14. RHINOCORT [Concomitant]
  15. PROSCAR [Concomitant]
  16. CALCIUM + VITAMIN D (CALDIUM, COLECALCIFEROL) [Concomitant]
  17. FIBERCON (POLYCARDBOPHIL CALCIUM) [Concomitant]
  18. VITAMIN BE (PYRIDOXINE HYDROCHLORIDE) [Concomitant]
  19. VITAMIN E (TOCOPHERYL ACETATE) [Concomitant]
  20. MULTIVITAMIN [Concomitant]
  21. ASCORBIC ACID [Concomitant]
  22. GARLIC (ALLIUM SATIVUM) [Concomitant]

REACTIONS (2)
  - DYSPNOEA EXERTIONAL [None]
  - INTERMITTENT CLAUDICATION [None]
